FAERS Safety Report 10672580 (Version 2)
Quarter: 2015Q1

REPORT INFORMATION
  Report Type: Spontaneous
  Country: FR (occurrence: FR)
  Receive Date: 20141223
  Receipt Date: 20150213
  Transmission Date: 20150720
  Serious: Yes (Hospitalization)
  Sender: FDA-Public Use
  Company Number: FR-PFIZER INC-2014349763

PATIENT
  Age: 48 Year
  Sex: Male

DRUGS (3)
  1. EXACYL [Concomitant]
     Active Substance: TRANEXAMIC ACID
     Dosage: 500 MG, UNK
  2. XANAX [Suspect]
     Active Substance: ALPRAZOLAM
     Dosage: 0.25 MG, SINGLE
     Route: 048
     Dates: start: 20141126, end: 20141126
  3. AMLOR [Concomitant]
     Active Substance: AMLODIPINE BESYLATE
     Dosage: 5 MG, UNK

REACTIONS (4)
  - Lip oedema [Recovered/Resolved]
  - Localised oedema [Recovered/Resolved]
  - Laryngeal oedema [Recovered/Resolved]
  - Dyspnoea [Recovered/Resolved]

NARRATIVE: CASE EVENT DATE: 20141126
